FAERS Safety Report 24155275 (Version 1)
Quarter: 2024Q3

REPORT INFORMATION
  Report Type: Spontaneous
  Country: IT (occurrence: IT)
  Receive Date: 20240731
  Receipt Date: 20240731
  Transmission Date: 20241017
  Serious: Yes (Other)
  Sender: ALKEM
  Company Number: IT-ALKEM LABORATORIES LIMITED-IT-ALKEM-2024-16403

PATIENT
  Age: 62 Year
  Sex: Male

DRUGS (7)
  1. AZATHIOPRINE [Suspect]
     Active Substance: AZATHIOPRINE
     Indication: Myasthenia gravis
     Dosage: 50 MG/DAY (BASE LINE)
     Route: 065
  2. AZATHIOPRINE [Suspect]
     Active Substance: AZATHIOPRINE
     Dosage: 100 MG/DAY (AT 3 MONTHS)
     Route: 065
  3. AZATHIOPRINE [Suspect]
     Active Substance: AZATHIOPRINE
     Dosage: 150 MG/DAY (AT 6 MONTHS)
     Route: 065
  4. AZATHIOPRINE [Suspect]
     Active Substance: AZATHIOPRINE
     Dosage: 200 MG/DAY (18 MONTHS)
     Route: 065
  5. PYRIDOSTIGMINE BROMIDE [Suspect]
     Active Substance: PYRIDOSTIGMINE BROMIDE
     Indication: Myasthenia gravis
     Dosage: 810 MG/DAY (BASELINE)
     Route: 065
  6. PYRIDOSTIGMINE BROMIDE [Suspect]
     Active Substance: PYRIDOSTIGMINE BROMIDE
     Dosage: 810 MG/DAY (AT 3 MONTHS)
     Route: 065
  7. PYRIDOSTIGMINE BROMIDE [Suspect]
     Active Substance: PYRIDOSTIGMINE BROMIDE
     Dosage: 735 MG/DAY (6 MONTHS)
     Route: 065

REACTIONS (11)
  - Rectal haemorrhage [Unknown]
  - Feeling abnormal [Unknown]
  - Blood urine present [Unknown]
  - Dyspnoea [Unknown]
  - Eye irritation [Unknown]
  - Feeling abnormal [Unknown]
  - Gingival bleeding [Unknown]
  - Urine analysis abnormal [Unknown]
  - Weight increased [Unknown]
  - Conjunctivitis [Unknown]
  - Arthralgia [Unknown]
